FAERS Safety Report 6818679-3 (Version None)
Quarter: 2010Q3

REPORT INFORMATION
  Report Type: 
  Country: None (occurrence: None)
  Receive Date: 20100706
  Receipt Date: 20100624
  Transmission Date: 20110219
  Serious: Yes (Hospitalization)
  Sender: FDA-Public Use
  Company Number: DE-AMGEN-QUU415659

PATIENT
  Sex: Male

DRUGS (8)
  1. ENBREL [Suspect]
     Indication: RHEUMATOID ARTHRITIS
     Route: 058
     Dates: start: 20090415, end: 20100101
  2. BISOPROLOL [Concomitant]
  3. ARAVA [Concomitant]
  4. PANTOZOL [Concomitant]
  5. ATORVASTATIN [Concomitant]
  6. PENTAERYTHRITOL TETRANITRATE [Concomitant]
  7. ACETYLSALICYLIC ACID [Concomitant]
  8. DIOVAN HCT [Concomitant]
     Dosage: 160/25MG 1X1 DAY

REACTIONS (3)
  - CHILLS [None]
  - PYREXIA [None]
  - TOOTH ABSCESS [None]
